FAERS Safety Report 19983522 (Version 1)
Quarter: 2021Q4

REPORT INFORMATION
  Report Type: Spontaneous
  Country: US (occurrence: US)
  Receive Date: 20211020
  Receipt Date: 20211020
  Transmission Date: 20220303
  Serious: Yes (Death)
  Sender: FDA-Public Use
  Company Number: None

PATIENT
  Age: 69 Year
  Sex: Male
  Weight: 84 kg

DRUGS (2)
  1. GADOBUTROL [Suspect]
     Active Substance: GADOBUTROL
     Dates: end: 20210527
  2. DEVICE [Suspect]
     Active Substance: DEVICE
     Dosage: MODEL NUMBER: VIDA?OTHER NUMBER: VA20A-SP02

REACTIONS (1)
  - Disease progression [None]

NARRATIVE: CASE EVENT DATE: 20210927
